FAERS Safety Report 18853640 (Version 3)
Quarter: 2021Q2

REPORT INFORMATION
  Report Type: Spontaneous
  Country: US (occurrence: US)
  Receive Date: 20210205
  Receipt Date: 20210416
  Transmission Date: 20210717
  Serious: No
  Sender: FDA-Public Use
  Company Number: US-PFIZER INC-2021081502

PATIENT
  Sex: Female

DRUGS (2)
  1. NICOTROL [Suspect]
     Active Substance: NICOTINE
     Dosage: 10 MG, 6 CT
  2. NICOTROL [Suspect]
     Active Substance: NICOTINE
     Dosage: UNK (10 MG CARTRIDGE)

REACTIONS (1)
  - Chest pain [Unknown]
